FAERS Safety Report 25142258 (Version 2)
Quarter: 2025Q4

REPORT INFORMATION
  Report Type: Spontaneous
  Country: US (occurrence: US)
  Receive Date: 20250331
  Receipt Date: 20251008
  Transmission Date: 20260118
  Serious: No
  Sender: PFIZER
  Company Number: US-PFIZER INC-PV202400000137

PATIENT
  Age: 83 Year
  Sex: Male

DRUGS (4)
  1. MEKTOVI [Suspect]
     Active Substance: BINIMETINIB
     Dosage: 30 MG, 2X/DAY, TAKE 2 TABLETS IN THE MORNING AND 2 TABLETS AT BEDTIME
     Route: 048
  2. MEKTOVI [Suspect]
     Active Substance: BINIMETINIB
     Dosage: 1 IN THE MORNING AND 1 IN THE EVENING
  3. BRAFTOVI [Suspect]
     Active Substance: ENCORAFENIB
     Dosage: 225 MG, 1X/DAY, 3 TABLETS IN THE MORNING
     Route: 048
  4. BRAFTOVI [Suspect]
     Active Substance: ENCORAFENIB
     Dosage: 1 IN THE MORNING AND 1 IN THE EVENING

REACTIONS (5)
  - Diarrhoea [Not Recovered/Not Resolved]
  - Fatigue [Not Recovered/Not Resolved]
  - Illness [Unknown]
  - Off label use [Unknown]
  - Intentional product misuse [Unknown]
